FAERS Safety Report 8771976 (Version 6)
Quarter: 2013Q3

REPORT INFORMATION
  Report Type: Spontaneous
  Country: US (occurrence: US)
  Receive Date: 20120906
  Receipt Date: 20130704
  Transmission Date: 20140515
  Serious: No
  Sender: FDA-Public Use
  Company Number: US-009507513-1208USA001164

PATIENT
  Age: 65 Year
  Sex: Female

DRUGS (7)
  1. PEG-INTRON [Suspect]
     Indication: HEPATITIS C
     Dosage: UNK, REDIPEN
     Dates: start: 20120720
  2. PEG-INTRON [Suspect]
     Dosage: 0.2 CC, REDIPEN
     Dates: start: 2012, end: 20120918
  3. PEG-INTRON [Suspect]
     Dosage: UNK, REDIPEN
     Dates: start: 20121005, end: 20130429
  4. REBETOL [Suspect]
     Indication: HEPATITIS C
     Dosage: UNK
     Dates: start: 20120720, end: 20120918
  5. REBETOL [Suspect]
     Dosage: UNK
     Dates: start: 20121005, end: 20130429
  6. VICTRELIS [Suspect]
     Indication: HEPATITIS C
     Dosage: UNK
     Dates: start: 20120817, end: 20120918
  7. VICTRELIS [Suspect]
     Dosage: UNK
     Dates: start: 20121005, end: 20130429

REACTIONS (24)
  - Peripheral coldness [Not Recovered/Not Resolved]
  - Blood disorder [Unknown]
  - Pain [Unknown]
  - Poor quality sleep [Unknown]
  - Anaemia [Recovered/Resolved]
  - Dry mouth [Unknown]
  - Dry mouth [Unknown]
  - Haemoglobin decreased [Recovered/Resolved]
  - Fatigue [Unknown]
  - Asthenia [Unknown]
  - Headache [Unknown]
  - Fatigue [Unknown]
  - Asthenia [Unknown]
  - Dry skin [Unknown]
  - Haemoglobin decreased [Recovered/Resolved]
  - Fatigue [Unknown]
  - Asthenia [Unknown]
  - Dry skin [Unknown]
  - Headache [Unknown]
  - Chills [Recovered/Resolved]
  - Asthenia [Unknown]
  - Haemoglobin decreased [Recovered/Resolved]
  - Rash [Recovered/Resolved]
  - Diarrhoea [Recovering/Resolving]
